FAERS Safety Report 8460037-2 (Version None)
Quarter: 2012Q2

REPORT INFORMATION
  Report Type: 
  Country: None (occurrence: None)
  Receive Date: 20120622
  Receipt Date: 20120612
  Transmission Date: 20120825
  Serious: Yes (Other)
  Sender: FDA-Public Use
  Company Number: PHEH2012US011412

PATIENT
  Sex: Female

DRUGS (5)
  1. SINGULAIR [Suspect]
     Indication: HYPERSENSITIVITY
     Dosage: 10 MG, QD
     Route: 048
     Dates: end: 20120609
  2. ALLEGRA [Concomitant]
     Indication: HYPERSENSITIVITY
     Dosage: 60 MG, QD
     Route: 048
  3. LOPRESSOR [Suspect]
     Indication: BLOOD PRESSURE ABNORMAL
     Dosage: 50 MG (HALF TABLET OF 100 MG), BID
     Route: 048
  4. METOPROLOL [Suspect]
     Dosage: 50 MG
     Route: 048
  5. VITAMIN B COMPLEX CAP [Concomitant]
     Indication: ALOPECIA
     Dosage: 50 MG, BID
     Route: 048

REACTIONS (3)
  - HYPERSENSITIVITY [None]
  - ASTHMA [None]
  - WRONG TECHNIQUE IN DRUG USAGE PROCESS [None]
